FAERS Safety Report 5754057-6 (Version None)
Quarter: 2008Q2

REPORT INFORMATION
  Report Type: 
  Country: None (occurrence: None)
  Receive Date: 20080530
  Receipt Date: 20080522
  Transmission Date: 20081010
  Serious: Yes (Other)
  Sender: FDA-Public Use
  Company Number: PHHY2008FR08760

PATIENT
  Age: 70 Year
  Sex: Female

DRUGS (2)
  1. FEMARA [Suspect]
     Dosage: 2.5 MG, UNK
  2. VITAMIN B-12 [Suspect]

REACTIONS (4)
  - ATAXIA [None]
  - GAIT DISTURBANCE [None]
  - POLYNEUROPATHY [None]
  - POSITIVE ROMBERGISM [None]
